FAERS Safety Report 8820839 (Version 1)
Quarter: 2012Q4

REPORT INFORMATION
  Report Type: 
  Country: UY (occurrence: US)
  Receive Date: 20121002
  Receipt Date: 20121002
  Transmission Date: 20130627
  Serious: Yes (Other)
  Sender: FDA-Public Use
  Company Number: UY-ELI_LILLY_AND_COMPANY-US201209006323

PATIENT
  Sex: Female

DRUGS (2)
  1. HUMULIN REGULAR [Suspect]
     Indication: DIABETES MELLITUS
     Dosage: UNK, unknown
  2. HUMULIN NPH [Suspect]
     Indication: DIABETES MELLITUS
     Dosage: UNK, unknown

REACTIONS (4)
  - Mass [Unknown]
  - Diarrhoea [Unknown]
  - Constipation [Unknown]
  - Blood glucose increased [Unknown]
